FAERS Safety Report 9855025 (Version 1)
Quarter: 2013Q4

REPORT INFORMATION
  Report Type: Spontaneous
  Country: US (occurrence: None)
  Receive Date: 20131226
  Receipt Date: 20131226
  Transmission Date: 20140711
  Serious: Yes (Other)
  Sender: FDA-Public Use
  Company Number: PHEH2013US015711

PATIENT
  Age: 70 Year
  Sex: 0

DRUGS (1)
  1. AFINITOR (RAD) TABLET, 10MG [Suspect]
     Indication: NEUROENDOCRINE TUMOUR
     Route: 048
     Dates: start: 20130222, end: 20130722

REACTIONS (1)
  - Renal impairment [None]
